FAERS Safety Report 15659932 (Version 1)
Quarter: 2018Q4

REPORT INFORMATION
  Report Type: Spontaneous
  Country: US (occurrence: US)
  Receive Date: 20181127
  Receipt Date: 20181127
  Transmission Date: 20190205
  Serious: No
  Sender: FDA-Public Use
  Company Number: US-TEVA-2018-US-979243

PATIENT
  Sex: Male

DRUGS (1)
  1. MUPIROCIN. [Suspect]
     Active Substance: MUPIROCIN
     Indication: SUTURE INSERTION
     Route: 065
     Dates: start: 20181109

REACTIONS (1)
  - Suture rupture [Unknown]

NARRATIVE: CASE EVENT DATE: 20181115
